FAERS Safety Report 23611946 (Version 1)
Quarter: 2024Q1

REPORT INFORMATION
  Report Type: Report from Study
  Country: BR (occurrence: BR)
  Receive Date: 20240308
  Receipt Date: 20240308
  Transmission Date: 20240409
  Serious: Yes (Other)
  Sender: FDA-Public Use
  Company Number: BR-JNJFOC-20240304594

PATIENT
  Sex: Female
  Weight: 55 kg

DRUGS (1)
  1. INFLIXIMAB [Suspect]
     Active Substance: INFLIXIMAB
     Indication: Psoriasis
     Route: 041
     Dates: start: 20180220

REACTIONS (4)
  - Gastrointestinal disorder [Unknown]
  - Candida infection [Unknown]
  - Arthralgia [Unknown]
  - Immune system disorder [Unknown]
